FAERS Safety Report 24119296 (Version 1)
Quarter: 2024Q3

REPORT INFORMATION
  Report Type: Spontaneous
  Country: US (occurrence: US)
  Receive Date: 20240722
  Receipt Date: 20240722
  Transmission Date: 20241017
  Serious: Yes (Life-Threatening)
  Sender: SUN BUM
  Company Number: US-SUNBUM-2024-US-036459

PATIENT
  Age: 26 Year
  Sex: Female
  Weight: 58.97 kg

DRUGS (1)
  1. SUN BUM MINERAL SPF30 SUNSCREEN [Suspect]
     Active Substance: ZINC OXIDE
     Indication: Therapeutic skin care topical
     Dosage: APPLIED TOPICALLY ALL OVER BODY
     Route: 061
     Dates: start: 20240629, end: 20240629

REACTIONS (3)
  - Anaphylactic reaction [Unknown]
  - Dyspnoea [Unknown]
  - Urticaria [Recovered/Resolved]

NARRATIVE: CASE EVENT DATE: 20240629
